FAERS Safety Report 9853703 (Version 1)
Quarter: 2014Q1

REPORT INFORMATION
  Report Type: Spontaneous
  Country: US (occurrence: US)
  Receive Date: 20140129
  Receipt Date: 20140129
  Transmission Date: 20141002
  Serious: No
  Sender: FDA-Public Use
  Company Number: US-GLAXOSMITHKLINE-A1008044A

PATIENT
  Age: 46 Year
  Sex: Female

DRUGS (3)
  1. WELLBUTRIN XL [Suspect]
     Indication: DEPRESSION
     Dosage: 150MG THREE TIMES PER DAY
     Route: 065
  2. LEXAPRO [Concomitant]
  3. PROGESTERONE [Concomitant]

REACTIONS (2)
  - Anxiety [Not Recovered/Not Resolved]
  - Medication error [Unknown]
